FAERS Safety Report 22368222 (Version 1)
Quarter: 2023Q2

REPORT INFORMATION
  Report Type: Spontaneous
  Country: US (occurrence: None)
  Receive Date: 20230525
  Receipt Date: 20230525
  Transmission Date: 20230722
  Serious: Yes (Hospitalization)
  Sender: FDA-Public Use
  Company Number: None

PATIENT
  Sex: Female

DRUGS (2)
  1. NUCALA [Suspect]
     Active Substance: MEPOLIZUMAB
     Indication: Essential hypertension
     Dosage: FREQUENCY : MONTHLY;?
     Route: 058
     Dates: start: 20211110
  2. SEROQUEL [Concomitant]

REACTIONS (2)
  - Condition aggravated [None]
  - Seasonal allergy [None]
